FAERS Safety Report 6254464-1 (Version None)
Quarter: 2009Q3

REPORT INFORMATION
  Report Type: 
  Country: None (occurrence: None)
  Receive Date: 20090702
  Receipt Date: 20090626
  Transmission Date: 20100115
  Serious: Yes (Hospitalization, Other)
  Sender: FDA-Public Use
  Company Number: US-AMGEN-US345489

PATIENT
  Sex: Female

DRUGS (17)
  1. NPLATE [Suspect]
     Indication: IDIOPATHIC THROMBOCYTOPENIC PURPURA
     Route: 065
     Dates: start: 20090413
  2. NPLATE [Suspect]
     Dates: start: 20090420
  3. NPLATE [Suspect]
     Dates: start: 20090427
  4. NPLATE [Suspect]
     Dates: start: 20090507
  5. NPLATE [Suspect]
     Dates: start: 20090511
  6. NPLATE [Suspect]
     Dates: start: 20090518
  7. COLACE [Concomitant]
  8. TOPROL-XL [Concomitant]
  9. ZANTAC [Concomitant]
  10. MULTI-VITAMINS [Concomitant]
  11. PREDNISONE [Concomitant]
  12. PROTONIX [Concomitant]
  13. ASCORBIC ACID [Concomitant]
  14. VITAMIN B COMPLEX CAP [Concomitant]
  15. AMBIEN [Concomitant]
  16. XANAX [Concomitant]
  17. PLATELETS [Concomitant]

REACTIONS (6)
  - HEADACHE [None]
  - MOUTH HAEMORRHAGE [None]
  - OROPHARYNGEAL BLISTERING [None]
  - PAROTID GLAND ENLARGEMENT [None]
  - PLEURAL EFFUSION [None]
  - THERAPEUTIC RESPONSE DECREASED [None]
